FAERS Safety Report 8959591 (Version 3)
Quarter: 2013Q1

REPORT INFORMATION
  Report Type: Spontaneous
  Country: JP (occurrence: JP)
  Receive Date: 20121211
  Receipt Date: 20130122
  Transmission Date: 20140127
  Serious: Yes (Death)
  Sender: FDA-Public Use
  Company Number: JP-JNJFOC-20121204619

PATIENT
  Age: 87 Year
  Sex: Male

DRUGS (10)
  1. FINIBAX [Suspect]
     Indication: PNEUMONIA
     Dosage: 0.25 GM FOUR TIMES DAILY
     Route: 041
     Dates: start: 20121115, end: 20121124
  2. JANUVIA [Suspect]
     Indication: DIABETES MELLITUS
     Route: 048
     Dates: start: 20121118, end: 20121124
  3. GASTER D [Suspect]
     Indication: GASTRITIS
     Route: 048
     Dates: start: 20121113, end: 20121123
  4. HANP [Suspect]
     Indication: CARDIAC FAILURE
     Route: 042
     Dates: start: 20121114, end: 20121120
  5. BAYASPIRIN [Concomitant]
     Indication: MYOCARDIAL INFARCTION
     Route: 048
     Dates: end: 20121124
  6. LIVALO [Concomitant]
     Indication: HYPERCHOLESTEROLAEMIA
     Route: 048
     Dates: end: 20121123
  7. PRORENAL [Concomitant]
     Indication: INTERVERTEBRAL DISC PROTRUSION
     Dosage: 15 MCG
     Route: 048
     Dates: end: 20121123
  8. PRODIF [Concomitant]
     Route: 042
     Dates: start: 20121119
  9. PRODIF [Concomitant]
     Route: 042
  10. UNASYN-S [Concomitant]
     Indication: PNEUMONIA
     Route: 065
     Dates: start: 20121113, end: 20121114

REACTIONS (1)
  - Interstitial lung disease [Fatal]
